FAERS Safety Report 5145426-6 (Version None)
Quarter: 2006Q4

REPORT INFORMATION
  Report Type: 
  Country: None (occurrence: None)
  Receive Date: 20061101
  Receipt Date: 20061013
  Transmission Date: 20070319
  Serious: Yes (Hospitalization)
  Sender: FDA-Public Use
  Company Number: FR200610002325

PATIENT
  Age: 78 Year
  Sex: Female

DRUGS (10)
  1. FORTEO [Suspect]
     Indication: OSTEOPOROSIS
     Dosage: SEE IMAGE
     Route: 058
     Dates: start: 20051225, end: 20060809
  2. FORTEO [Suspect]
     Indication: OSTEOPOROSIS
     Dosage: SEE IMAGE
     Route: 058
     Dates: start: 20060908
  3. FORTEO [Concomitant]
  4. SYMBICORT TURBUHALER ^ASTRAZENECA^ [Concomitant]
  5. ZADITEN [Concomitant]
  6. TEDRALAN [Concomitant]
  7. VASTAREL            (TRIMETAZIDINE HYDROCHLORIDE) [Concomitant]
  8. ASPIRIN [Concomitant]
  9. FORLAX                    (MACROGOL) [Concomitant]
  10. DAFALGAN                    (PARACETAMOL) [Concomitant]

REACTIONS (2)
  - ABDOMINAL STRANGULATED HERNIA [None]
  - VOMITING [None]
